FAERS Safety Report 8384814-1 (Version None)
Quarter: 2012Q2

REPORT INFORMATION
  Report Type: 
  Country: None (occurrence: None)
  Receive Date: 20120524
  Receipt Date: 20120516
  Transmission Date: 20120825
  Serious: Yes (Other)
  Sender: FDA-Public Use
  Company Number: JP-VERTEX PHARMACEUTICALS INC.-AE-2012-007471

PATIENT
  Age: 66 Year
  Sex: Female

DRUGS (10)
  1. RIBAVIRIN [Concomitant]
     Indication: HEPATITIS C
     Route: 048
     Dates: start: 20120403
  2. VIVIANT [Concomitant]
     Route: 048
     Dates: start: 20120403
  3. TELAVIC (TELAPREVIR) [Suspect]
     Indication: HEPATITIS C
     Route: 048
     Dates: start: 20120403
  4. SELBEX [Concomitant]
     Route: 048
     Dates: start: 20120403
  5. PEGINTERFERON ALFA-2B [Concomitant]
     Indication: HEPATITIS C
     Route: 051
  6. RIBAVIRIN [Concomitant]
     Route: 048
     Dates: start: 20120417, end: 20120423
  7. RIBAVIRIN [Concomitant]
     Route: 048
     Dates: start: 20120508, end: 20120514
  8. XYZAL [Concomitant]
     Route: 048
     Dates: end: 20120507
  9. RIBAVIRIN [Concomitant]
     Route: 048
     Dates: start: 20120424, end: 20120507
  10. RIBAVIRIN [Concomitant]
     Route: 048
     Dates: start: 20120515

REACTIONS (1)
  - NEUTROPHIL COUNT DECREASED [None]
